FAERS Safety Report 5311456-4 (Version None)
Quarter: 2007Q2

REPORT INFORMATION
  Report Type: 
  Country: None (occurrence: None)
  Receive Date: 20070426
  Receipt Date: 20070426
  Transmission Date: 20071010
  Serious: Yes (Other)
  Sender: FDA-Public Use
  Company Number: None

PATIENT
  Age: 70 Year
  Sex: Male
  Weight: 76.7 kg

DRUGS (23)
  1. PERCOCET [Suspect]
  2. SIMVASTATIN [Concomitant]
  3. FISH OIL [Concomitant]
  4. PREDNISONE TAB [Concomitant]
  5. FOSINOPRIL NA [Concomitant]
  6. AMOXICILLIN/CLAV K [Concomitant]
  7. ISOSORBIDE MONONITRATE [Concomitant]
  8. METOPROLOL TARTRATE [Concomitant]
  9. OMEPRAZOLE [Concomitant]
  10. TIMOLOL MALEATE [Concomitant]
  11. AMLODIPINE BESYLATE [Concomitant]
  12. ASPIRIN [Concomitant]
  13. FOLIC ACID [Concomitant]
  14. FUROSEMIDE [Concomitant]
  15. TRAVOPROST [Concomitant]
  16. AZITHROMYCIN [Concomitant]
  17. DM 10/GUAIFENESIN 100MG/5ML (ALC-F/SF)SYR [Concomitant]
  18. MEDICATION CASSETTE [Concomitant]
  19. METHOTREXATE [Concomitant]
  20. NOVOLIN 70/30 [Concomitant]
  21. CAPSAICIN [Concomitant]
  22. DOCUSATE NA /SENNOSIDES [Concomitant]
  23. NITROGLYCERIN [Concomitant]

REACTIONS (1)
  - DELIRIUM [None]
